FAERS Safety Report 6214112-3 (Version None)
Quarter: 2009Q2

REPORT INFORMATION
  Report Type: 
  Country: None (occurrence: None)
  Receive Date: 20090604
  Receipt Date: 20090530
  Transmission Date: 20091009
  Serious: Yes (Other)
  Sender: FDA-Public Use
  Company Number: DE-BRISTOL-MYERS SQUIBB COMPANY-14645139

PATIENT
  Age: 43 Year
  Sex: Female
  Weight: 89 kg

DRUGS (1)
  1. ABILIFY [Suspect]
     Dosage: 2 TABS.
     Route: 048
     Dates: start: 20090530, end: 20090530

REACTIONS (2)
  - DRUG ABUSE [None]
  - NO ADVERSE EVENT [None]
